FAERS Safety Report 11791905 (Version 1)
Quarter: 2015Q4

REPORT INFORMATION
  Report Type: Spontaneous
  Country: IR (occurrence: IR)
  Receive Date: 20151201
  Receipt Date: 20151201
  Transmission Date: 20160305
  Serious: Yes (Death, Hospitalization)
  Sender: FDA-Public Use
  Company Number: PHHY2015IR152992

PATIENT
  Age: 6 Year
  Sex: Male

DRUGS (1)
  1. METHADONE [Suspect]
     Active Substance: METHADONE HYDROCHLORIDE
     Indication: PRODUCT USED FOR UNKNOWN INDICATION
     Dosage: 100 MG, UNK
     Route: 065

REACTIONS (6)
  - Brain death [Fatal]
  - Cerebral haemorrhage [Unknown]
  - Pneumonia [Unknown]
  - Accidental exposure to product by child [Unknown]
  - Poisoning [Unknown]
  - Respiratory disorder [Unknown]
